FAERS Safety Report 12686602 (Version 1)
Quarter: 2016Q3

REPORT INFORMATION
  Report Type: Spontaneous
  Country: US (occurrence: US)
  Receive Date: 20160825
  Receipt Date: 20160825
  Transmission Date: 20161109
  Serious: No
  Sender: FDA-Public Use
  Company Number: US-BAYER-2016-165022

PATIENT
  Age: 8 Year
  Sex: Female
  Weight: 24.94 kg

DRUGS (1)
  1. CHILDREN CLARITIN ALLERGY [Suspect]
     Active Substance: LORATADINE
     Indication: ECZEMA
     Dosage: 2 DF, QD
     Route: 048

REACTIONS (3)
  - Off label use [None]
  - Product use issue [None]
  - Therapeutic response unexpected [None]
